FAERS Safety Report 8050708-4 (Version None)
Quarter: 2012Q1

REPORT INFORMATION
  Report Type: 
  Country: None (occurrence: None)
  Receive Date: 20120117
  Receipt Date: 20120117
  Transmission Date: 20120608
  Serious: No
  Sender: FDA-Public Use
  Company Number: None

PATIENT
  Age: 61 Year
  Sex: Male
  Weight: 95.254 kg

DRUGS (1)
  1. CHANTIX [Suspect]

REACTIONS (5)
  - MUSCLE TWITCHING [None]
  - DRUG EFFECT DECREASED [None]
  - IMPAIRED WORK ABILITY [None]
  - FAMILIAL TREMOR [None]
  - CONDITION AGGRAVATED [None]
